FAERS Safety Report 20380007 (Version 2)
Quarter: 2022Q1

REPORT INFORMATION
  Report Type: Spontaneous
  Country: US (occurrence: US)
  Receive Date: 20220126
  Receipt Date: 20220202
  Transmission Date: 20220423
  Serious: Yes (Death, Hospitalization, Other)
  Sender: FDA-Public Use
  Company Number: US-ALLERGAN-2202930US

PATIENT
  Sex: Female
  Weight: 57.3 kg

DRUGS (12)
  1. NAMENDA [Suspect]
     Active Substance: MEMANTINE HYDROCHLORIDE
     Indication: Product used for unknown indication
     Dosage: UNK
     Dates: start: 2021, end: 20211108
  2. GOCOVRI [Suspect]
     Active Substance: AMANTADINE
     Indication: Dyskinesia
     Dosage: 68.5 MG AND 137 MG
     Route: 048
     Dates: start: 20200120
  3. CARBIDOPA [Concomitant]
     Active Substance: CARBIDOPA
     Dosage: 25 MG
  4. LIPITOR [Concomitant]
     Active Substance: ATORVASTATIN CALCIUM
     Dosage: 20 MG
  5. MIDODRINE [Concomitant]
     Active Substance: MIDODRINE
     Dosage: 2.5 MG
  6. OMEPRAZOLE [Concomitant]
     Active Substance: OMEPRAZOLE
     Dosage: 40 MG
  7. RYTARY [Concomitant]
     Active Substance: CARBIDOPA\LEVODOPA
     Dosage: 95 MG
  8. TRAZODONE [Concomitant]
     Active Substance: TRAZODONE HYDROCHLORIDE
     Dosage: 100 MG
  9. TYLENOL [Concomitant]
     Active Substance: ACETAMINOPHEN
     Dosage: 500 MG
  10. ZOLOFT [Concomitant]
     Active Substance: SERTRALINE HYDROCHLORIDE
     Dosage: 100 MG
  11. DEEP BRAIN STIMULATION [Concomitant]
     Dosage: UNK
     Dates: start: 202111
  12. DEEP BRAIN STIMULATION [Concomitant]
     Dosage: UNK

REACTIONS (11)
  - Death [Fatal]
  - Seizure [Unknown]
  - Encephalopathy [Unknown]
  - Pneumonia [Unknown]
  - Facial paralysis [Unknown]
  - Electrocardiogram QT prolonged [Unknown]
  - Fall [Unknown]
  - Dysstasia [Unknown]
  - Urinary tract infection [Unknown]
  - Hallucination [Unknown]
  - Headache [Unknown]

NARRATIVE: CASE EVENT DATE: 20211030
